FAERS Safety Report 4595006-6 (Version None)
Quarter: 2005Q1

REPORT INFORMATION
  Report Type: 
  Country: None (occurrence: None)
  Receive Date: 20050223
  Receipt Date: 20050103
  Transmission Date: 20050727
  Serious: Yes (Hospitalization)
  Sender: FDA-Public Use
  Company Number: 2005017103

PATIENT
  Age: 58 Year
  Sex: Male

DRUGS (10)
  1. SOLU-MEDROL [Suspect]
     Indication: ILL-DEFINED DISORDER
     Dosage: 120 MG (1 IN 1 D), INTRAVENOUS
     Route: 042
     Dates: start: 20041008, end: 20041008
  2. CISPLATIN [Suspect]
     Indication: LUNG NEOPLASM MALIGNANT
     Dosage: 125 MG (1 IN 1 D), INTRAVENOUS
     Route: 042
     Dates: start: 20041008, end: 20041008
  3. GEMCITABINE HYDROCHLORIDE (GEMCITABINE HYDROCHLORIDE) [Suspect]
     Indication: LUNG NEOPLASM MALIGNANT
     Dosage: 2.1 GRAM (1 IN 1 D), INTRAVENOUS
     Route: 042
     Dates: start: 20041008, end: 20041008
  4. ONDANSETRON HCL [Concomitant]
  5. NICORANDIL (NICORANDIL) [Concomitant]
  6. ACETYLSALICYLIC ACID SRT [Concomitant]
  7. OMEPRAZOLE [Concomitant]
  8. ZOLPIDEM TARTRATE [Concomitant]
  9. ALPRAZOLAM [Concomitant]
  10. SIMVASTATIN [Concomitant]

REACTIONS (2)
  - ATRIAL FIBRILLATION [None]
  - CHEST PAIN [None]
